FAERS Safety Report 4840163-7 (Version None)
Quarter: 2005Q4

REPORT INFORMATION
  Report Type: 
  Country: None (occurrence: None)
  Receive Date: 20051125
  Receipt Date: 20051111
  Transmission Date: 20060501
  Serious: Yes (Death, Hospitalization)
  Sender: FDA-Public Use
  Company Number: 219444

PATIENT
  Age: 79 Year
  Sex: Male

DRUGS (6)
  1. AVASTIN [Suspect]
     Indication: NON-SMALL CELL LUNG CANCER
     Dosage: 10 MG/KG
     Dates: start: 20050811, end: 20051014
  2. CARBOPLATIN [Concomitant]
  3. TAXOL [Concomitant]
  4. INSULIN [Concomitant]
  5. METFORMIN (METFORMIN) [Concomitant]
  6. LEVOTHYROXINE SODIUM [Concomitant]

REACTIONS (6)
  - ASTHENIA [None]
  - BRAIN OEDEMA [None]
  - CEREBRAL HAEMORRHAGE [None]
  - GASTROINTESTINAL HAEMORRHAGE [None]
  - HAEMOPTYSIS [None]
  - PULSE ABSENT [None]
